FAERS Safety Report 14360690 (Version 1)
Quarter: 2018Q1

REPORT INFORMATION
  Report Type: Spontaneous
  Country: FR (occurrence: FR)
  Receive Date: 20180106
  Receipt Date: 20180106
  Transmission Date: 20180509
  Serious: Yes (Hospitalization)
  Sender: FDA-Public Use
  Company Number: FR-MYLANLABS-2018M1001177

PATIENT
  Age: 63 Year
  Sex: Female

DRUGS (4)
  1. LEVETIRACETAM MYLAN PHARMA 500 MG, COMPRIM? PELLICUL? [Suspect]
     Active Substance: LEVETIRACETAM
     Indication: PROPHYLAXIS
     Route: 048
     Dates: start: 20170129, end: 20170207
  2. IOMERON [Suspect]
     Active Substance: IOMEPROL
     Indication: COMPUTERISED TOMOGRAM HEAD
     Dosage: UNK UNK, TOTAL
     Route: 042
     Dates: start: 20170208, end: 20170208
  3. INEXIUM 40 MG, COMPRIM? GASTRO-R?SISTANT [Suspect]
     Active Substance: ESOMEPRAZOLE
     Indication: PRODUCT USED FOR UNKNOWN INDICATION
     Route: 048
     Dates: start: 20170205, end: 20170214
  4. VISIPAQUE [Suspect]
     Active Substance: IODIXANOL
     Indication: ANGIOGRAM CEREBRAL
     Dosage: UNK UNK, TOTAL
     Route: 013
     Dates: start: 20170206, end: 20170206

REACTIONS (3)
  - Eosinophil count increased [Recovered/Resolved]
  - Dermatitis exfoliative generalised [Recovered/Resolved]
  - Mixed liver injury [Recovering/Resolving]

NARRATIVE: CASE EVENT DATE: 20170205
